FAERS Safety Report 8078432-2 (Version None)
Quarter: 2012Q1

REPORT INFORMATION
  Report Type: 
  Country: None (occurrence: None)
  Receive Date: 20120123
  Receipt Date: 20120109
  Transmission Date: 20120608
  Serious: Yes (Death, Hospitalization)
  Sender: FDA-Public Use
  Company Number: 2012MA000674

PATIENT
  Age: 31 Year
  Sex: Female
  Weight: 72.5755 kg

DRUGS (2)
  1. PAREGORIC LIQUID USP (ALPHARMA) [Suspect]
  2. CODEINE [Concomitant]

REACTIONS (5)
  - DIZZINESS [None]
  - DYSPNOEA [None]
  - VOMITING [None]
  - PAIN IN EXTREMITY [None]
  - PYREXIA [None]
